FAERS Safety Report 26010465 (Version 3)
Quarter: 2025Q4

REPORT INFORMATION
  Report Type: Spontaneous
  Country: BR (occurrence: BR)
  Receive Date: 20251107
  Receipt Date: 20251210
  Transmission Date: 20260118
  Serious: Yes (Other)
  Sender: SANDOZ
  Company Number: BR-002147023-NVSC2025BR169207

PATIENT
  Sex: Female
  Weight: 70 kg

DRUGS (14)
  1. ENTRESTO [Suspect]
     Active Substance: SACUBITRIL\VALSARTAN
     Indication: Heart failure with reduced ejection fraction
     Dosage: 100 MG
     Route: 065
  2. ENTRESTO [Suspect]
     Active Substance: SACUBITRIL\VALSARTAN
     Dosage: 100 MG, BID
     Route: 065
  3. ROSUVASTATIN CALCIUM [Suspect]
     Active Substance: ROSUVASTATIN CALCIUM
     Indication: Product used for unknown indication
     Dosage: 10 MG, 01 COMP (AS REPORTED)
     Route: 065
     Dates: start: 202411
  4. ROSUVASTATIN CALCIUM [Suspect]
     Active Substance: ROSUVASTATIN CALCIUM
     Dosage: 20 MG
     Route: 065
  5. CLONAZEPAM [Concomitant]
     Active Substance: CLONAZEPAM
     Indication: Product used for unknown indication
     Dosage: 0.5 MG
     Route: 065
  6. ELIQUIS [Concomitant]
     Active Substance: APIXABAN
     Indication: Product used for unknown indication
     Dosage: 5 MG
     Route: 065
  7. Exodus [Concomitant]
     Indication: Product used for unknown indication
     Dosage: UNK
     Route: 065
  8. DAPAGLIFLOZIN [Concomitant]
     Active Substance: DAPAGLIFLOZIN
     Indication: Product used for unknown indication
     Dosage: 10 MG
     Route: 065
  9. INSPRA [Concomitant]
     Active Substance: EPLERENONE
     Indication: Product used for unknown indication
     Dosage: 25 MG
     Route: 065
  10. LOSARTAN POTASSIUM [Concomitant]
     Active Substance: LOSARTAN POTASSIUM
     Indication: Product used for unknown indication
     Dosage: 50 MG
     Route: 065
  11. METHYLCOBALAMIN [Concomitant]
     Active Substance: METHYLCOBALAMIN
     Indication: Product used for unknown indication
     Dosage: 100 MG
     Route: 065
  12. BEMPEDOIC ACID\EZETIMIBE [Concomitant]
     Active Substance: BEMPEDOIC ACID\EZETIMIBE
     Indication: Product used for unknown indication
     Dosage: UNK
     Route: 065
  13. METOPROLOL SUCCINATE [Concomitant]
     Active Substance: METOPROLOL SUCCINATE
     Indication: Product used for unknown indication
     Dosage: 25 MG
     Route: 065
  14. Trezor [Concomitant]
     Indication: Product used for unknown indication
     Dosage: 40 MG
     Route: 065

REACTIONS (18)
  - Cataract [Unknown]
  - Diabetes mellitus [Unknown]
  - Frustration tolerance decreased [Unknown]
  - Malaise [Unknown]
  - Vitamin B complex deficiency [Unknown]
  - Haemorrhoids [Unknown]
  - Nervous system disorder [Unknown]
  - Ill-defined disorder [Unknown]
  - Blood cholesterol increased [Unknown]
  - Decreased appetite [Unknown]
  - Rhinitis [Unknown]
  - Sleep disorder [Unknown]
  - Sluggishness [Unknown]
  - Hiccups [Recovered/Resolved]
  - Hypertension [Unknown]
  - Constipation [Recovered/Resolved]
  - Fatigue [Unknown]
  - Wrong technique in product usage process [Unknown]
